FAERS Safety Report 7271994 (Version 7)
Quarter: 2013Q4

REPORT INFORMATION
  Report Type: Spontaneous
  Country: US (occurrence: US)
  Receive Date: 20100205
  Receipt Date: 20131112
  Transmission Date: 20140711
  Serious: Yes (Hospitalization, Other)
  Sender: FDA-Public Use
  Company Number: US-BAYER-201012586NA

PATIENT
  Age: 30 Year
  Sex: Female
  Weight: 61.22 kg

DRUGS (13)
  1. YAZ [Suspect]
     Dosage: RECEIVED MANY MONTHS WORTH OF SAMPLES SEVERAL TIMES DURING VISITS FROM 2002 - 2009 FROM HCP
     Route: 048
     Dates: start: 20080424, end: 20091029
  2. YASMIN [Suspect]
     Dosage: RECEIVED MANY MONTHS WORTH OF SAMPLES SEVERAL TIMES DURING VISITS FROM 2002 - 2009 FROM HCP
     Route: 048
     Dates: start: 20050430, end: 20070421
  3. LOESTRIN [Concomitant]
     Indication: CONTRACEPTION
  4. LEVAQUIN [Concomitant]
     Dates: start: 2000
  5. NSAID^S [Concomitant]
     Dates: start: 2000
  6. SYNTHROID [Concomitant]
  7. LUNESTA [Concomitant]
  8. METHADONE [Concomitant]
     Dosage: 10 MG, UNK
     Dates: start: 20080602
  9. MEDROL COMP [Concomitant]
     Dosage: 4 MG, UNK
     Dates: start: 20071121
  10. RELPAX [Concomitant]
     Dosage: 40 MG, UNK
     Dates: start: 20080602
  11. MOTRIN [Concomitant]
     Dosage: 800 MG, UNK
  12. LOVAZA [Concomitant]
     Dosage: 1 MG, UNK
  13. KAPIDEX [Concomitant]
     Dosage: 60 MG, UNK

REACTIONS (6)
  - Cholelithiasis [None]
  - Cholecystitis chronic [None]
  - Injury [None]
  - Pain [None]
  - Anxiety [None]
  - Anhedonia [None]
